FAERS Safety Report 9524611 (Version 2)
Quarter: 2013Q4

REPORT INFORMATION
  Report Type: Report from Study
  Country: US (occurrence: US)
  Receive Date: 20130916
  Receipt Date: 20131008
  Transmission Date: 20140711
  Serious: Yes (Other)
  Sender: FDA-Public Use
  Company Number: PHEH2013US019317

PATIENT
  Age: 21 Year
  Sex: Male

DRUGS (8)
  1. TOBI [Suspect]
     Indication: CYSTIC FIBROSIS
     Dosage: 300 MG, BID
  2. TOBI [Suspect]
     Dosage: UNK UKN, UNK
  3. TOBI PODHALER [Suspect]
     Dosage: 112 MG, BID
     Dates: start: 201307, end: 201308
  4. PULMOZYME [Concomitant]
  5. SODIUM CHLORIDE [Concomitant]
  6. ALBUTEROL [Concomitant]
  7. CAYSTON [Concomitant]
  8. NEXIUM//ESOMEPRAZOLE MAGNESIUM [Concomitant]

REACTIONS (3)
  - Vertigo [Not Recovered/Not Resolved]
  - Cough [Recovering/Resolving]
  - Malaise [Recovering/Resolving]
